FAERS Safety Report 23211546 (Version 1)
Quarter: 2023Q4

REPORT INFORMATION
  Report Type: Spontaneous
  Country: US (occurrence: US)
  Receive Date: 20231121
  Receipt Date: 20231121
  Transmission Date: 20240110
  Serious: No
  Sender: FDA-Public Use
  Company Number: US-Blueprint Medicines Corporation-1718

PATIENT
  Sex: Female

DRUGS (1)
  1. AYVAKIT [Suspect]
     Active Substance: AVAPRITINIB
     Indication: Gastrointestinal stromal tumour
     Route: 065
     Dates: start: 20230220

REACTIONS (6)
  - Oropharyngeal pain [Unknown]
  - Bacterial infection [Unknown]
  - Fatigue [Unknown]
  - Red blood cell count decreased [Unknown]
  - Blood bilirubin increased [Unknown]
  - Rash [Unknown]
